FAERS Safety Report 20031565 (Version 1)
Quarter: 2021Q4

REPORT INFORMATION
  Report Type: Spontaneous
  Country: GB (occurrence: GB)
  Receive Date: 20211103
  Receipt Date: 20211103
  Transmission Date: 20220303
  Serious: Yes (Other)
  Sender: FDA-Public Use
  Company Number: GB-ABBVIE-21K-167-4141591-00

PATIENT
  Age: 52 Year
  Sex: Male

DRUGS (1)
  1. DIVALPROEX SODIUM [Suspect]
     Active Substance: DIVALPROEX SODIUM
     Indication: Schizoaffective disorder
     Route: 065
     Dates: end: 201812

REACTIONS (5)
  - Hepatitis C [Unknown]
  - Neutropenia [Recovered/Resolved]
  - Thrombocytopenia [Recovering/Resolving]
  - Hepatic function abnormal [Unknown]
  - Product use in unapproved indication [Unknown]

NARRATIVE: CASE EVENT DATE: 20181101
